FAERS Safety Report 15486879 (Version 1)
Quarter: 2018Q4

REPORT INFORMATION
  Report Type: Spontaneous
  Country: US (occurrence: US)
  Receive Date: 20181011
  Receipt Date: 20181011
  Transmission Date: 20190205
  Serious: No
  Sender: FDA-Public Use
  Company Number: US-TEVA-2018-US-961674

PATIENT
  Age: 62 Year
  Sex: Female

DRUGS (1)
  1. AZITHROMYCIN ANHYDROUS. [Suspect]
     Active Substance: AZITHROMYCIN ANHYDROUS
     Indication: NASOPHARYNGITIS
     Dates: start: 20181002

REACTIONS (5)
  - Nervousness [Unknown]
  - Tinnitus [Unknown]
  - Anger [Unknown]
  - Feeling jittery [Unknown]
  - Headache [Unknown]

NARRATIVE: CASE EVENT DATE: 20181002
